FAERS Safety Report 6285576-4 (Version None)
Quarter: 2009Q3

REPORT INFORMATION
  Report Type: 
  Country: None (occurrence: None)
  Receive Date: 20090727
  Receipt Date: 20081222
  Transmission Date: 20100115
  Serious: No
  Sender: FDA-Public Use
  Company Number: US-TYCO HEALTHCARE/MALLINCKRODT-T200802155

PATIENT
  Sex: Male

DRUGS (3)
  1. METHADONE HCL [Suspect]
     Indication: DRUG DEPENDENCE
     Dosage: 40 MG, QD
     Route: 048
     Dates: start: 20081217, end: 20081221
  2. METHADONE HCL [Suspect]
     Dosage: 40 MG IN AM, 20 MG TWICE IN PM
     Dates: start: 20081221
  3. METHADONE HCL [Concomitant]
     Indication: DRUG DEPENDENCE
     Dosage: 100 MG, QD

REACTIONS (3)
  - INFLUENZA LIKE ILLNESS [None]
  - WEIGHT DECREASED [None]
  - WITHDRAWAL SYNDROME [None]
